FAERS Safety Report 6574424-0 (Version None)
Quarter: 2010Q1

REPORT INFORMATION
  Report Type: 
  Country: None (occurrence: None)
  Receive Date: 20100209
  Receipt Date: 20100205
  Transmission Date: 20100710
  Serious: Yes (Other)
  Sender: FDA-Public Use
  Company Number: US-ASTRAZENECA-2007UW15794

PATIENT
  Age: 31 Year
  Sex: Female
  Weight: 97.5 kg

DRUGS (31)
  1. SEROQUEL [Suspect]
     Indication: SLEEP DISORDER
     Dosage: 100-1000 MG
     Route: 048
     Dates: start: 19990101
  2. SEROQUEL [Suspect]
     Indication: SCHIZOPHRENIA
     Dosage: 100-1000 MG
     Route: 048
     Dates: start: 19990101
  3. SEROQUEL [Suspect]
     Indication: BIPOLAR DISORDER
     Dosage: 100-1000 MG
     Route: 048
     Dates: start: 19990101
  4. SEROQUEL [Suspect]
     Indication: DEPRESSION
     Dosage: 100-1000 MG
     Route: 048
     Dates: start: 19990101
  5. SEROQUEL [Suspect]
     Route: 048
     Dates: start: 20040511
  6. SEROQUEL [Suspect]
     Route: 048
     Dates: start: 20040511
  7. SEROQUEL [Suspect]
     Route: 048
     Dates: start: 20040511
  8. SEROQUEL [Suspect]
     Route: 048
     Dates: start: 20040511
  9. SEROQUEL [Suspect]
     Dosage: 400-600MG
     Route: 048
     Dates: start: 20040823
  10. SEROQUEL [Suspect]
     Dosage: 400-600MG
     Route: 048
     Dates: start: 20040823
  11. SEROQUEL [Suspect]
     Dosage: 400-600MG
     Route: 048
     Dates: start: 20040823
  12. SEROQUEL [Suspect]
     Dosage: 400-600MG
     Route: 048
     Dates: start: 20040823
  13. SEROQUEL [Suspect]
     Route: 048
     Dates: start: 20041226
  14. SEROQUEL [Suspect]
     Route: 048
     Dates: start: 20041226
  15. SEROQUEL [Suspect]
     Route: 048
     Dates: start: 20041226
  16. SEROQUEL [Suspect]
     Route: 048
     Dates: start: 20041226
  17. SEROQUEL [Suspect]
     Dosage: 200-800MG
     Route: 048
     Dates: start: 20060823
  18. SEROQUEL [Suspect]
     Dosage: 200-800MG
     Route: 048
     Dates: start: 20060823
  19. SEROQUEL [Suspect]
     Dosage: 200-800MG
     Route: 048
     Dates: start: 20060823
  20. SEROQUEL [Suspect]
     Dosage: 200-800MG
     Route: 048
     Dates: start: 20060823
  21. DEPAKOTE [Concomitant]
     Indication: SCHIZOPHRENIA
     Dosage: 1-1000 MG/DAY
     Route: 048
     Dates: start: 19970101
  22. BUSPAR [Concomitant]
     Dates: start: 20010220
  23. KLONOPIN [Concomitant]
     Indication: SCHIZOPHRENIA
     Dosage: 1-2 MG
     Dates: start: 19970101
  24. LOVASTATIN [Concomitant]
     Dosage: 40 MG,2 TABLETS
     Dates: start: 20090416
  25. BENAZEPRIL HYDROCHLORIDE [Concomitant]
     Dosage: 5-20 MG
     Route: 048
     Dates: start: 20090416
  26. TEMAZEPAM [Concomitant]
     Dates: start: 20080815
  27. EFFEXOR [Concomitant]
     Dates: start: 20010419
  28. ABILIFY [Concomitant]
     Dates: start: 20060801
  29. NAVANE [Concomitant]
     Dates: start: 19940101
  30. RISPERDAL [Concomitant]
     Indication: SCHIZOPHRENIA
     Route: 048
     Dates: start: 20040511
  31. REGULAR INSULIN [Concomitant]
     Indication: DIABETES MELLITUS
     Dosage: 2-30 UNITS
     Dates: start: 20040511

REACTIONS (7)
  - BLOOD CHOLESTEROL INCREASED [None]
  - DIABETIC COMA [None]
  - DIABETIC KETOACIDOSIS [None]
  - DIABETIC NEUROPATHY [None]
  - PANCREATITIS [None]
  - TYPE 1 DIABETES MELLITUS [None]
  - TYPE 2 DIABETES MELLITUS [None]
